FAERS Safety Report 17823485 (Version 2)
Quarter: 2020Q2

REPORT INFORMATION
  Report Type: Report from Study
  Country: None (occurrence: US)
  Receive Date: 20200526
  Receipt Date: 20200619
  Transmission Date: 20200714
  Serious: Yes (Other)
  Sender: FDA-Public Use
  Company Number: US-INSMED, INC.-US-INS-20-00975

PATIENT
  Sex: Female

DRUGS (9)
  1. ARIKAYCE [Suspect]
     Active Substance: AMIKACIN
     Indication: MYCOBACTERIUM AVIUM COMPLEX INFECTION
     Route: 055
     Dates: start: 20190401, end: 2019
  2. ARIKAYCE [Suspect]
     Active Substance: AMIKACIN
     Route: 055
     Dates: start: 20200328
  3. AZITHROMYCIN ANHYDROUS. [Concomitant]
     Active Substance: AZITHROMYCIN ANHYDROUS
     Indication: PRODUCT USED FOR UNKNOWN INDICATION
  4. CLOFAZIMINE [Concomitant]
     Active Substance: CLOFAZIMINE
     Indication: PRODUCT USED FOR UNKNOWN INDICATION
  5. ARIKAYCE [Suspect]
     Active Substance: AMIKACIN
     Route: 055
     Dates: start: 2019, end: 2019
  6. LAMIRA NEBULIZER SYSTEM [Suspect]
     Active Substance: DEVICE
  7. ARIKAYCE [Suspect]
     Active Substance: AMIKACIN
     Dosage: ONE HALF OF VIAL PER TREATMENT
     Route: 055
     Dates: start: 2019, end: 202003
  8. AMIKACIN. [Concomitant]
     Active Substance: AMIKACIN
     Indication: MYCOBACTERIUM AVIUM COMPLEX INFECTION
     Route: 042
     Dates: start: 202003, end: 2020
  9. ETHAMBUTOL [Concomitant]
     Active Substance: ETHAMBUTOL HYDROCHLORIDE
     Indication: PRODUCT USED FOR UNKNOWN INDICATION

REACTIONS (9)
  - Laryngitis [Recovered/Resolved]
  - Off label use [Unknown]
  - Prescribed underdose [Unknown]
  - Lung perforation [Unknown]
  - Throat irritation [Unknown]
  - Therapy interrupted [Unknown]
  - Pneumothorax [Unknown]
  - Secretion discharge [Recovering/Resolving]
  - Cough [Recovering/Resolving]

NARRATIVE: CASE EVENT DATE: 2019
